FAERS Safety Report 11362857 (Version 3)
Quarter: 2015Q4

REPORT INFORMATION
  Report Type: Spontaneous
  Country: US (occurrence: None)
  Receive Date: 20150807
  Receipt Date: 20151222
  Transmission Date: 20160304
  Serious: Yes (Hospitalization, Other)
  Sender: FDA-Public Use
  Company Number: ADR-2015-01482

PATIENT
  Age: 49 Year
  Sex: Male

DRUGS (2)
  1. COMPOUNDED BACLOFEN INTRATHECAL 2000 MCG/ML [Suspect]
     Active Substance: BACLOFEN
     Indication: MUSCLE SPASTICITY
     Dosage: 470 MCG/DAY
  2. LIORESAL [Suspect]
     Active Substance: BACLOFEN

REACTIONS (7)
  - Medical device site bruise [None]
  - Medical device site fibrosis [None]
  - Medical device site erythema [None]
  - Medical device site warmth [None]
  - No therapeutic response [None]
  - Medical device site vesicles [None]
  - Medical device site infection [None]
